FAERS Safety Report 4561496-8 (Version None)
Quarter: 2005Q1

REPORT INFORMATION
  Report Type: 
  Country: None (occurrence: None)
  Receive Date: 20050121
  Receipt Date: 20050106
  Transmission Date: 20050727
  Serious: Yes (Hospitalization)
  Sender: FDA-Public Use
  Company Number: 200500194

PATIENT
  Sex: Female
  Weight: 3.69 kg

DRUGS (2)
  1. TAZORAC [Suspect]
     Indication: DRUG EXPOSURE DURING PREGNANCY
     Dates: start: 20020906, end: 20030101
  2. TAZORAC [Suspect]
     Indication: DRUG EXPOSURE DURING PREGNANCY
     Dates: start: 20030101, end: 20030530

REACTIONS (4)
  - DRUG EXPOSURE DURING PREGNANCY [None]
  - DYSPNOEA [None]
  - NEONATAL DISORDER [None]
  - PREGNANCY [None]
